FAERS Safety Report 11338189 (Version 1)
Quarter: 2015Q3

REPORT INFORMATION
  Report Type: Spontaneous
  Country: US (occurrence: US)
  Receive Date: 20150803
  Receipt Date: 20150803
  Transmission Date: 20151125
  Serious: Yes (Other)
  Sender: FDA-Public Use
  Company Number: US-ELI_LILLY_AND_COMPANY-US201007005680

PATIENT
  Age: 15 Year
  Sex: Female
  Weight: 81.63 kg

DRUGS (4)
  1. SEROQUEL [Concomitant]
     Active Substance: QUETIAPINE FUMARATE
  2. ZYPREXA [Suspect]
     Active Substance: OLANZAPINE
     Indication: SCHIZOPHRENIA
     Dosage: 10 MG, DAILY (1/D)
     Dates: end: 20100713
  3. ZYPREXA [Suspect]
     Active Substance: OLANZAPINE
     Dosage: 5 MG, DAILY (1/D)
     Dates: start: 20100714, end: 20100720
  4. ZYPREXA [Suspect]
     Active Substance: OLANZAPINE
     Dosage: 10 MG, UNK
     Dates: start: 20100721

REACTIONS (5)
  - Obsessive-compulsive disorder [Unknown]
  - Repetitive speech [Unknown]
  - Memory impairment [Unknown]
  - Abnormal behaviour [Unknown]
  - Weight increased [Not Recovered/Not Resolved]
